FAERS Safety Report 26141305 (Version 1)
Quarter: 2025Q4

REPORT INFORMATION
  Report Type: Spontaneous
  Country: US (occurrence: US)
  Receive Date: 20251210
  Receipt Date: 20251210
  Transmission Date: 20260117
  Serious: Yes (Hospitalization)
  Sender: VERTEX
  Company Number: US-VERTEX PHARMACEUTICALS-2025-019633

PATIENT
  Age: 79 Year
  Sex: Female

DRUGS (7)
  1. JOURNAVX [Suspect]
     Active Substance: SUZETRIGINE
     Indication: Pain
     Dosage: 50 MG, BID
     Dates: start: 20251105, end: 202511
  2. JOURNAVX [Suspect]
     Active Substance: SUZETRIGINE
     Dosage: 25 MG, BID (HALF DOSE)
     Dates: start: 202511, end: 20251130
  3. TRAMADOL [Concomitant]
     Active Substance: TRAMADOL
     Indication: Knee arthroplasty
     Dosage: 50 MG, TABLET, BID
     Dates: start: 20251105, end: 202511
  4. TRAMADOL [Concomitant]
     Active Substance: TRAMADOL
     Dosage: 50 MG, TABLET, QD
  5. ASPIRIN [Concomitant]
     Active Substance: ASPIRIN
     Indication: Anticoagulant therapy
     Dosage: UNK
  6. TYLENOL [Concomitant]
     Active Substance: ACETAMINOPHEN
     Dosage: UNK, EVERY 6 HOURS/PRN
  7. TYLENOL [Concomitant]
     Active Substance: ACETAMINOPHEN
     Dosage: UNK, EVERY 6 HOURS/PRN (HALF DOSE)

REACTIONS (2)
  - Loss of consciousness [Unknown]
  - Hypotension [Unknown]

NARRATIVE: CASE EVENT DATE: 20251106
